FAERS Safety Report 10505123 (Version 2)
Quarter: 2014Q3

REPORT INFORMATION
  Report Type: Spontaneous
  Country: US (occurrence: None)
  Receive Date: 20140915
  Receipt Date: 20140915
  Transmission Date: 20150326
  Serious: Yes (Disabling)
  Sender: FDA-Public Use
  Company Number: 2012SGN00195

PATIENT
  Age: 39 Year
  Sex: Male

DRUGS (6)
  1. BENADRYL [Concomitant]
     Active Substance: DIPHENHYDRAMINE HYDROCHLORIDE
  2. ACETAMINOPHEN (ACETAMINOPHEN) [Concomitant]
     Active Substance: ACETAMINOPHEN
  3. ADCETRIS [Suspect]
     Active Substance: BRENTUXIMAB VEDOTIN
     Indication: HODGKIN^S DISEASE
     Dosage: Q21D, INTRAVENOUS
     Route: 042
     Dates: start: 20111007, end: 20120404
  4. ADCETRIS [Suspect]
     Active Substance: BRENTUXIMAB VEDOTIN
     Indication: DISEASE RECURRENCE
     Dosage: Q21D, INTRAVENOUS
     Route: 042
     Dates: start: 20111007, end: 20120404
  5. NAVELBINE (VINORELBINE DITARTRATE) [Concomitant]
  6. GRANISETRON (GRANISETRON HYDROCHLORIDE) [Concomitant]

REACTIONS (1)
  - Neuropathy peripheral [None]
